FAERS Safety Report 24177438 (Version 1)
Quarter: 2024Q3

REPORT INFORMATION
  Report Type: Spontaneous
  Country: US (occurrence: US)
  Receive Date: 20240806
  Receipt Date: 20240806
  Transmission Date: 20241017
  Serious: Yes (Hospitalization)
  Sender: ULTRAGENYX PHARMACEUTICAL
  Company Number: US-ULTRAGENYX PHARMACEUTICAL INC.-US-UGX-24-01443

PATIENT
  Sex: Male

DRUGS (1)
  1. DOJOLVI [Suspect]
     Active Substance: TRIHEPTANOIN
     Indication: Carnitine palmitoyltransferase deficiency
     Dosage: 15 MILLILITER, QID (MIXED THOROUGHLY WITH FOOD OR DRINK INCLUDING AT MEALTIMES OR SNACKS)
     Route: 048

REACTIONS (1)
  - Metabolic disorder [Not Recovered/Not Resolved]
